FAERS Safety Report 24116552 (Version 1)
Quarter: 2024Q3

REPORT INFORMATION
  Report Type: Spontaneous
  Country: US (occurrence: US)
  Receive Date: 20240722
  Receipt Date: 20240722
  Transmission Date: 20241016
  Serious: No
  Sender: ASTELLAS
  Company Number: US-ASTELLAS-2024US004623

PATIENT
  Age: 71 Year
  Sex: Male

DRUGS (1)
  1. MYRBETRIQ [Suspect]
     Active Substance: MIRABEGRON
     Indication: Urinary tract disorder
     Dosage: 50 MG, ONCE DAILY (IN MORNING)
     Route: 048
     Dates: start: 202401

REACTIONS (2)
  - Product dispensing error [Unknown]
  - Wrong product administered [Unknown]

NARRATIVE: CASE EVENT DATE: 20240201
